FAERS Safety Report 24918263 (Version 2)
Quarter: 2025Q2

REPORT INFORMATION
  Report Type: Spontaneous
  Country: US (occurrence: US)
  Receive Date: 20250203
  Receipt Date: 20250529
  Transmission Date: 20250717
  Serious: No
  Sender: SCPHARMACEUTICALS
  Company Number: US-SCPHARMACEUTICALS-2024-SCPH-US000682

PATIENT

DRUGS (3)
  1. FUROSCIX [Suspect]
     Active Substance: FUROSEMIDE
     Indication: Product used for unknown indication
     Route: 058
  2. FUROSCIX [Suspect]
     Active Substance: FUROSEMIDE
     Route: 058
     Dates: start: 20241116, end: 20241116
  3. FUROSEMIDE [Concomitant]
     Active Substance: FUROSEMIDE
     Indication: Product used for unknown indication
     Route: 048

REACTIONS (3)
  - Infusion site pain [Unknown]
  - Weight increased [Unknown]
  - Constipation [Unknown]

NARRATIVE: CASE EVENT DATE: 20241116
